FAERS Safety Report 8859992 (Version 1)
Quarter: 2012Q4

REPORT INFORMATION
  Report Type: 
  Country: US (occurrence: US)
  Receive Date: 20121025
  Receipt Date: 20121025
  Transmission Date: 20130627
  Serious: Yes (Other)
  Sender: FDA-Public Use
  Company Number: US-PFIZER INC-2012262432

PATIENT
  Sex: Female

DRUGS (1)
  1. TOVIAZ [Suspect]
     Indication: URINARY INCONTINENCE
     Dosage: 4 mg, 1x/day
     Route: 048
     Dates: start: 20121019, end: 20121020

REACTIONS (4)
  - Urinary incontinence [Unknown]
  - Pollakiuria [Unknown]
  - Sleep disorder [Unknown]
  - Dysphonia [Unknown]
